FAERS Safety Report 4352280-9 (Version None)
Quarter: 2004Q2

REPORT INFORMATION
  Report Type: 
  Country: None (occurrence: None)
  Receive Date: 20040427
  Receipt Date: 20030428
  Transmission Date: 20050107
  Serious: Yes (Other)
  Sender: FDA-Public Use
  Company Number: 2003-104610-NL

PATIENT
  Age: 45 Year
  Sex: Male

DRUGS (4)
  1. ZEMURON [Suspect]
     Indication: INDUCTION AND MAINTENANCE OF ANAESTHESIA
     Dosage: DF (DAILY) INTRAVENOUS (NOS)
     Route: 042
     Dates: start: 20030423, end: 20030423
  2. PROPOFEL [Suspect]
     Indication: INDUCTION AND MAINTENANCE OF ANAESTHESIA
     Dosage: DF DAILY INTRAVENOUS (NOS)
     Route: 042
     Dates: start: 20030423, end: 20030423
  3. VERSED [Concomitant]
  4. FENTANYL [Concomitant]

REACTIONS (1)
  - ANAPHYLACTOID REACTION [None]
